FAERS Safety Report 5598867-7 (Version None)
Quarter: 2008Q1

REPORT INFORMATION
  Report Type: 
  Country: None (occurrence: None)
  Receive Date: 20080122
  Receipt Date: 20080116
  Transmission Date: 20080703
  Serious: Yes (Hospitalization)
  Sender: FDA-Public Use
  Company Number: HU-BRISTOL-MYERS SQUIBB COMPANY-13698683

PATIENT
  Age: 68 Year
  Sex: Female

DRUGS (8)
  1. CDDP [Suspect]
     Indication: METASTATIC GASTRIC CANCER
     Dosage: CYCLE 1: 12JAN07-NI
     Route: 042
     Dates: start: 20070209, end: 20070209
  2. MEGACE [Suspect]
     Indication: ANOREXIA
     Route: 048
     Dates: start: 20070101
  3. FLUOROURACIL [Suspect]
     Indication: METASTATIC GASTRIC CANCER
     Dosage: CYCLE1: 12JAN07-NI. DAY 1-5 EVERY 28 DAYS
     Route: 042
     Dates: start: 20070209, end: 20070214
  4. NORMODIPINE [Concomitant]
     Indication: HYPERTENSION
     Route: 048
     Dates: start: 19870101
  5. BETALOC [Concomitant]
     Indication: HYPERTENSION
     Route: 048
     Dates: start: 19870101
  6. GLYBURIDE [Concomitant]
     Indication: DIABETES MELLITUS
     Route: 048
     Dates: start: 19970101
  7. ISOSOURCE [Concomitant]
     Indication: ANOREXIA
     Route: 048
     Dates: start: 20070101
  8. QUAMATEL [Concomitant]
     Indication: DYSPEPSIA
     Route: 048
     Dates: start: 20040101

REACTIONS (4)
  - ANAEMIA [None]
  - HYPERGLYCAEMIA [None]
  - NEUTROPENIA [None]
  - THROMBOCYTOPENIA [None]
